FAERS Safety Report 16245970 (Version 1)
Quarter: 2019Q2

REPORT INFORMATION
  Report Type: Spontaneous
  Country: US (occurrence: US)
  Receive Date: 20190426
  Receipt Date: 20190426
  Transmission Date: 20190711
  Serious: No
  Sender: FDA-Public Use
  Company Number: US-009507513-1904USA007994

PATIENT
  Age: 45 Year
  Sex: Female

DRUGS (8)
  1. EMEND [Suspect]
     Active Substance: APREPITANT
     Indication: PRURITUS GENERALISED
     Dosage: 40 MG TWICE DAILY
  2. PREGABALIN. [Concomitant]
     Active Substance: PREGABALIN
     Indication: PRURITUS GENERALISED
     Dosage: 100 MILLIGRAM, DAILY
  3. ELOCON [Suspect]
     Active Substance: MOMETASONE FUROATE
     Indication: PRURITUS GENERALISED
     Route: 061
  4. NALTREXONE [Concomitant]
     Active Substance: NALTREXONE
     Indication: PRURITUS GENERALISED
     Dosage: 100 MG DAILY
  5. PRAMOXINE HYDROCHLORIDE. [Concomitant]
     Active Substance: PRAMOXINE HYDROCHLORIDE
     Indication: PRURITUS GENERALISED
  6. MENTHOL. [Concomitant]
     Active Substance: MENTHOL
     Indication: PRURITUS GENERALISED
  7. REMERON [Suspect]
     Active Substance: MIRTAZAPINE
     Indication: PRURITUS GENERALISED
     Dosage: 15 MG DAILY
  8. DOXEPIN HYDROCHLORIDE. [Concomitant]
     Active Substance: DOXEPIN HYDROCHLORIDE
     Indication: PRURITUS GENERALISED
     Dosage: DOXEPIN

REACTIONS (1)
  - Product use in unapproved indication [Unknown]
